FAERS Safety Report 12592270 (Version 1)
Quarter: 2016Q3

REPORT INFORMATION
  Report Type: Spontaneous
  Country: US (occurrence: None)
  Receive Date: 20160725
  Receipt Date: 20160725
  Transmission Date: 20161109
  Serious: No
  Sender: FDA-Public Use
  Company Number: None

PATIENT
  Age: 70 Year
  Sex: Female

DRUGS (1)
  1. GLIPIZIDE XI TABS - 10MG ACTAVIS [Suspect]
     Active Substance: GLIPIZIDE
     Indication: DIABETES MELLITUS
     Dosage: 2 TABLETS QD ORAL
     Route: 048

REACTIONS (2)
  - Product substitution issue [None]
  - Blood glucose increased [None]

NARRATIVE: CASE EVENT DATE: 20160708
